FAERS Safety Report 9249461 (Version 1)
Quarter: 2013Q2

REPORT INFORMATION
  Report Type: Spontaneous
  Country: US (occurrence: US)
  Receive Date: 20130423
  Receipt Date: 20130423
  Transmission Date: 20140414
  Serious: No
  Sender: FDA-Public Use
  Company Number: US-FOUGERA-2012FO001047

PATIENT
  Age: 72 Year
  Sex: Female
  Weight: 53.98 kg

DRUGS (4)
  1. DESONIDE [Suspect]
     Indication: PRURITUS
     Route: 061
     Dates: start: 20120329, end: 20120329
  2. DESONIDE [Suspect]
     Indication: SKIN IRRITATION
     Route: 061
     Dates: start: 20120329, end: 20120329
  3. PETROLEUM JELLY [Concomitant]
     Indication: BURNING SENSATION
     Route: 061
  4. PETROLEUM JELLY [Concomitant]
     Indication: SKIN IRRITATION
     Route: 061

REACTIONS (3)
  - Application site erosion [Recovering/Resolving]
  - Application site haemorrhage [Recovering/Resolving]
  - Application site pain [Recovering/Resolving]
